FAERS Safety Report 6095851-4 (Version None)
Quarter: 2009Q1

REPORT INFORMATION
  Report Type: 
  Country: None (occurrence: None)
  Receive Date: 20090227
  Receipt Date: 20080729
  Transmission Date: 20090719
  Serious: No
  Sender: FDA-Public Use
  Company Number: A0735177B

PATIENT
  Sex: Female

DRUGS (3)
  1. LAMICTAL [Suspect]
     Indication: BIPOLAR DISORDER
     Dosage: 150MG TWICE PER DAY
     Dates: start: 20030101
  2. WELLBUTRIN XL [Suspect]
     Dosage: 150MG PER DAY
     Dates: start: 20030101
  3. ZOLOFT [Concomitant]
     Indication: POSTPARTUM DEPRESSION
     Dates: start: 20080601

REACTIONS (2)
  - DRUG EXPOSURE DURING PREGNANCY [None]
  - DRUG EXPOSURE VIA BREAST MILK [None]
